FAERS Safety Report 4616353-5 (Version None)
Quarter: 2005Q1

REPORT INFORMATION
  Report Type: 
  Country: None (occurrence: None)
  Receive Date: 20050321
  Receipt Date: 20050304
  Transmission Date: 20050727
  Serious: Yes (Other)
  Sender: FDA-Public Use
  Company Number: IMP_0840_2005

PATIENT
  Age: 43 Year
  Sex: Female
  Weight: 53.0709 kg

DRUGS (4)
  1. BUPROPRION [Suspect]
     Indication: ANXIETY
     Dosage: 150 MG QDAY PO
     Route: 048
     Dates: start: 20041201
  2. ATENOLOL [Concomitant]
  3. EZETIMIBE AND SIMVASTATIN [Concomitant]
  4. NEXIUM [Concomitant]

REACTIONS (16)
  - ABDOMINAL PAIN UPPER [None]
  - BONE PAIN [None]
  - CARDIAC DISORDER [None]
  - CHEST PAIN [None]
  - EATING DISORDER [None]
  - FEELING ABNORMAL [None]
  - GASTROOESOPHAGEAL REFLUX DISEASE [None]
  - HEPATIC STEATOSIS [None]
  - HYPERHIDROSIS [None]
  - HYPOAESTHESIA [None]
  - NAUSEA [None]
  - PAIN [None]
  - PAIN IN JAW [None]
  - PALPITATIONS [None]
  - PHARMACEUTICAL PRODUCT COMPLAINT [None]
  - WEIGHT DECREASED [None]
